FAERS Safety Report 8535081-7 (Version None)
Quarter: 2012Q3

REPORT INFORMATION
  Report Type: 
  Country: None (occurrence: None)
  Receive Date: 20120724
  Receipt Date: 20120717
  Transmission Date: 20120928
  Serious: Yes (Other)
  Sender: FDA-Public Use
  Company Number: US-PFIZER INC-2012173428

PATIENT
  Sex: Female

DRUGS (6)
  1. DIFLUCAN [Suspect]
     Indication: FUNGAL INFECTION
     Dosage: UNK
     Route: 042
  2. DIFLUCAN [Suspect]
     Indication: CANDIDIASIS
  3. CLINDAMYCIN PHOSPHATE [Suspect]
     Indication: FUNGAL INFECTION
     Dosage: UNK
  4. DIFLUCAN [Suspect]
     Dosage: 150 MG, UNK
     Route: 048
  5. DIFLUCAN [Suspect]
  6. CLINDAMYCIN PHOSPHATE [Suspect]
     Indication: CANDIDIASIS

REACTIONS (3)
  - DISCOMFORT [None]
  - CANDIDIASIS [None]
  - PAIN [None]
